FAERS Safety Report 7360388-9 (Version None)
Quarter: 2011Q1

REPORT INFORMATION
  Report Type: 
  Country: None (occurrence: None)
  Receive Date: 20110318
  Receipt Date: 20110120
  Transmission Date: 20110831
  Serious: Yes (Hospitalization, Other)
  Sender: FDA-Public Use
  Company Number: US-BAYER-201027400NA

PATIENT
  Sex: Female
  Weight: 105 kg

DRUGS (6)
  1. YASMIN [Suspect]
     Indication: PREMENSTRUAL SYNDROME
  2. YAZ [Suspect]
     Indication: PREMENSTRUAL SYNDROME
  3. YAZ [Suspect]
     Indication: ORAL CONTRACEPTION
     Route: 048
  4. VICODIN [Concomitant]
     Indication: BILIARY COLIC
  5. YASMIN [Suspect]
     Indication: ORAL CONTRACEPTION
     Route: 048
     Dates: start: 20020401, end: 20070101
  6. VICODIN [Concomitant]
     Indication: ABDOMINAL PAIN

REACTIONS (4)
  - CHOLECYSTECTOMY [None]
  - CHOLELITHIASIS [None]
  - CHOLECYSTITIS CHRONIC [None]
  - JAUNDICE [None]
